FAERS Safety Report 6888632-2 (Version None)
Quarter: 2010Q3

REPORT INFORMATION
  Report Type: 
  Country: None (occurrence: None)
  Receive Date: 20100730
  Receipt Date: 20071015
  Transmission Date: 20110219
  Serious: No
  Sender: FDA-Public Use
  Company Number: US-PFIZER INC-2007055866

PATIENT
  Sex: Female
  Weight: 50.8 kg

DRUGS (11)
  1. LIPITOR [Suspect]
     Indication: BLOOD CHOLESTEROL INCREASED
  2. LITHIUM [Concomitant]
  3. SYNTHROID [Concomitant]
  4. PRIMIDONE [Concomitant]
     Dosage: 3 PILLS
  5. TIOTROPIUM BROMIDE [Concomitant]
     Route: 055
  6. VITAMINS [Concomitant]
  7. FOSAMAX [Concomitant]
  8. CITRACAL [Concomitant]
  9. CENTRUM [Concomitant]
     Indication: SEASONAL ALLERGY
  10. CLARITIN [Concomitant]
     Indication: SEASONAL ALLERGY
  11. ZOLOFT [Concomitant]

REACTIONS (4)
  - ARTHRITIS [None]
  - BLOOD TRIGLYCERIDES INCREASED [None]
  - DRY SKIN [None]
  - PRURITUS [None]
